FAERS Safety Report 7457828-3 (Version None)
Quarter: 2011Q2

REPORT INFORMATION
  Report Type: 
  Country: None (occurrence: None)
  Receive Date: 20110504
  Receipt Date: 20110421
  Transmission Date: 20111010
  Serious: Yes (Hospitalization, Other)
  Sender: FDA-Public Use
  Company Number: PHHY2011JP35554

PATIENT
  Sex: Male

DRUGS (10)
  1. ONEALFA [Concomitant]
     Dosage: 0.001 MG, UNK
     Route: 048
     Dates: start: 20110108, end: 20110228
  2. ALOSITOL [Concomitant]
     Dosage: 100 MG, UNK
     Route: 048
     Dates: start: 20110108, end: 20110325
  3. FOSRENOL [Concomitant]
     Dosage: 750 MG, UNK
     Route: 048
     Dates: start: 20110225, end: 20110325
  4. KAYEXALATE [Concomitant]
     Dosage: 15 G, UNK
     Route: 048
     Dates: start: 20110225, end: 20110325
  5. CINACALCET HYDROCHLORIDE [Concomitant]
     Dosage: 25 MG, UNK
     Route: 048
     Dates: start: 20110226, end: 20110325
  6. CALCIUM CARBONATE [Concomitant]
     Dosage: 5 G, UNK
     Route: 048
     Dates: start: 20110225, end: 20110325
  7. AFINITOR [Suspect]
     Indication: METASTATIC RENAL CELL CARCINOMA
     Dosage: 10 MG, DAILY
     Route: 048
     Dates: start: 20110226, end: 20110315
  8. BLOPRESS [Concomitant]
     Dosage: 8 MG, UNK
     Route: 048
     Dates: start: 20110108, end: 20110321
  9. ADALAT CC [Concomitant]
     Dosage: 60 MG, UNK
     Route: 048
     Dates: start: 20110108, end: 20110315
  10. ALFAROL [Concomitant]
     Dosage: 0.5 UG, UNK
     Route: 048
     Dates: start: 20110301, end: 20110325

REACTIONS (4)
  - HAEMOGLOBIN DECREASED [None]
  - BLOOD CREATININE INCREASED [None]
  - NEOPLASM MALIGNANT [None]
  - C-REACTIVE PROTEIN INCREASED [None]
